FAERS Safety Report 24698137 (Version 3)
Quarter: 2025Q3

REPORT INFORMATION
  Report Type: Report from Study
  Country: JP (occurrence: JP)
  Receive Date: 20241204
  Receipt Date: 20250802
  Transmission Date: 20251020
  Serious: Yes (Other)
  Sender: ALEXION PHARMACEUTICALS
  Company Number: JP-ASTRAZENECA-202411JPN021175JP

PATIENT
  Age: 56 Year
  Sex: Female

DRUGS (4)
  1. ULTOMIRIS [Suspect]
     Active Substance: RAVULIZUMAB-CWVZ
     Indication: Myasthenia gravis
     Dosage: UNK UNK, Q8W
     Dates: start: 20240903
  2. PREDONINE [Concomitant]
     Active Substance: PREDNISOLONE
     Route: 065
  3. PREDONINE [Concomitant]
     Active Substance: PREDNISOLONE
     Route: 065
  4. MESTINON [Concomitant]
     Active Substance: PYRIDOSTIGMINE BROMIDE
     Route: 065

REACTIONS (4)
  - Crohn^s disease [Unknown]
  - Joint instability [Unknown]
  - Grip strength decreased [Unknown]
  - Musculoskeletal discomfort [Unknown]
